FAERS Safety Report 5913010-X (Version None)
Quarter: 2008Q4

REPORT INFORMATION
  Report Type: 
  Country: None (occurrence: None)
  Receive Date: 20081008
  Receipt Date: 20080926
  Transmission Date: 20090506
  Serious: Yes (Hospitalization)
  Sender: FDA-Public Use
  Company Number: FR-PFIZER INC-2008082283

PATIENT
  Sex: Female

DRUGS (8)
  1. NEURONTIN [Suspect]
     Indication: NEURALGIA
     Route: 048
     Dates: start: 20080409, end: 20080518
  2. VANCOMYCIN [Suspect]
     Indication: SKIN INFECTION
     Dates: start: 20080425, end: 20080518
  3. BACTRIM DS [Suspect]
     Indication: SKIN INFECTION
     Route: 048
     Dates: start: 20080425, end: 20080518
  4. LAROXYL [Suspect]
     Indication: NEURALGIA
     Route: 048
     Dates: start: 20080414, end: 20080518
  5. ANAFRANIL [Suspect]
     Indication: NEURALGIA
     Route: 048
     Dates: start: 20080410, end: 20080520
  6. NEXIUM [Concomitant]
     Route: 048
     Dates: start: 20080322, end: 20080518
  7. ACETAMINOPHEN [Concomitant]
     Route: 048
     Dates: start: 20080322, end: 20080523
  8. LOVENOX [Concomitant]
     Route: 058
     Dates: start: 20080322

REACTIONS (1)
  - DRUG RASH WITH EOSINOPHILIA AND SYSTEMIC SYMPTOMS [None]
